FAERS Safety Report 22112667 (Version 5)
Quarter: 2023Q2

REPORT INFORMATION
  Report Type: Report from Study
  Country: CO (occurrence: CO)
  Receive Date: 20230319
  Receipt Date: 20230529
  Transmission Date: 20230721
  Serious: Yes (Death, Hospitalization, Other)
  Sender: FDA-Public Use
  Company Number: CO-ABBVIE-4149781

PATIENT
  Age: 72 Year
  Sex: Female
  Weight: 76 kg

DRUGS (9)
  1. VENCLEXTA [Suspect]
     Active Substance: VENETOCLAX
     Indication: Acute myeloid leukaemia
     Dosage: FOR 21 DAYS?LAST ADMIN DATE 2022
     Route: 048
     Dates: start: 20221115
  2. VENCLEXTA [Suspect]
     Active Substance: VENETOCLAX
     Indication: Acute myeloid leukaemia
     Dosage: STRENGTH: 100 MILLIGRAM
     Route: 048
     Dates: start: 20220611, end: 20230221
  3. VENCLEXTA [Suspect]
     Active Substance: VENETOCLAX
     Indication: Acute myeloid leukaemia
     Dosage: FREQUENCY TEXT: DAILY FOR 21 DAYS
     Route: 048
     Dates: start: 20221213
  4. VENCLEXTA [Suspect]
     Active Substance: VENETOCLAX
     Indication: Acute myeloid leukaemia
     Dosage: FORM STRENGTH: 100 MILLIGRAM ?FOR 30 DAYS
     Route: 048
     Dates: start: 20220611, end: 20221023
  5. AZACITIDINE [Suspect]
     Active Substance: AZACITIDINE
     Indication: Chemotherapy
     Dosage: LAST ADMIN DATE: 2023?FIRST ADMIN DATE; 2023
     Route: 065
  6. AZACITIDINE [Suspect]
     Active Substance: AZACITIDINE
     Indication: Chemotherapy
     Dosage: LAST ADMINISTRATION: 2023
     Route: 065
     Dates: start: 20230110
  7. AZACITIDINE [Suspect]
     Active Substance: AZACITIDINE
     Indication: Chemotherapy
     Route: 065
     Dates: start: 202211, end: 202211
  8. AZACITIDINE [Suspect]
     Active Substance: AZACITIDINE
     Indication: Chemotherapy
     Route: 065
     Dates: start: 202212
  9. AZACITIDINE [Suspect]
     Active Substance: AZACITIDINE
     Indication: Chemotherapy
     Route: 065
     Dates: start: 20220903, end: 20220909

REACTIONS (9)
  - Death [Fatal]
  - Platelet count decreased [Not Recovered/Not Resolved]
  - Red blood cell count decreased [Recovering/Resolving]
  - Leukopenia [Recovering/Resolving]
  - Immunodeficiency [Unknown]
  - Laboratory test abnormal [Unknown]
  - Haemoglobin decreased [Recovering/Resolving]
  - White blood cell disorder [Unknown]
  - Acute myeloid leukaemia [Unknown]

NARRATIVE: CASE EVENT DATE: 20220916
